FAERS Safety Report 8533180-7 (Version None)
Quarter: 2012Q3

REPORT INFORMATION
  Report Type: 
  Country: None (occurrence: None)
  Receive Date: 20120724
  Receipt Date: 20120711
  Transmission Date: 20120928
  Serious: Yes (Hospitalization)
  Sender: FDA-Public Use
  Company Number: DE-009507513-2012SP031716

PATIENT

DRUGS (9)
  1. ASENAPINE MALEATE [Suspect]
     Dosage: 10 MG PER DAY
     Route: 048
     Dates: start: 20111109
  2. AMITRIPTYLINE HCL [Concomitant]
     Indication: DEPRESSION
     Dosage: 75 MG, QD
     Dates: end: 20111009
  3. AMITRIPTYLINE HCL [Concomitant]
     Dosage: 25 MG, QD
     Dates: start: 20111010
  4. ASENAPINE MALEATE [Suspect]
     Dosage: 15 MG, PER DAY
     Route: 048
     Dates: start: 20110923, end: 20110930
  5. ASENAPINE MALEATE [Suspect]
     Indication: BIPOLAR I DISORDER
     Dosage: 10 MG PER DAY
     Route: 048
     Dates: start: 20110916, end: 20110922
  6. ASENAPINE MALEATE [Suspect]
     Dosage: 5 MG PER DAY
     Route: 048
     Dates: start: 20111001, end: 20111024
  7. VALPROATE SODIUM [Concomitant]
     Indication: BIPOLAR I DISORDER
     Dosage: 1200 MILLIGRAM, QD
     Dates: start: 20110520
  8. SEROQUEL [Concomitant]
     Indication: BIPOLAR I DISORDER
     Dosage: 300 MG, QD
     Dates: start: 20110101
  9. QUILONORM (LITHIUM ACETATE) [Concomitant]
     Indication: BIPOLAR I DISORDER
     Dosage: 2 DF PER DAY
     Dates: end: 20111006

REACTIONS (3)
  - DRUG EFFECT DECREASED [None]
  - MANIA [None]
  - DEPRESSION [None]
